FAERS Safety Report 7885286-3 (Version None)
Quarter: 2011Q4

REPORT INFORMATION
  Report Type: 
  Country: None (occurrence: None)
  Receive Date: 20111102
  Receipt Date: 20111026
  Transmission Date: 20120403
  Serious: Yes (Other)
  Sender: FDA-Public Use
  Company Number: US-SANOFI-AVENTIS-2011SA070444

PATIENT
  Sex: Male

DRUGS (11)
  1. PRILOSEC [Concomitant]
     Indication: ULCER
  2. PRILOSEC [Concomitant]
  3. ZANTAC [Concomitant]
     Indication: ULCER
  4. PREVACID [Concomitant]
  5. PANTOPRAZOLE [Concomitant]
  6. PLAVIX [Suspect]
     Route: 048
     Dates: start: 20060101
  7. NEXIUM [Concomitant]
     Indication: ULCER
  8. PANTOPRAZOLE [Concomitant]
     Indication: ULCER
  9. NEXIUM [Concomitant]
  10. PREVACID [Concomitant]
     Indication: ULCER
  11. ZANTAC [Concomitant]

REACTIONS (2)
  - CORONARY ARTERY STENOSIS [None]
  - CONDITION AGGRAVATED [None]
